FAERS Safety Report 8016014-9 (Version None)
Quarter: 2011Q4

REPORT INFORMATION
  Report Type: 
  Country: None (occurrence: None)
  Receive Date: 20111230
  Receipt Date: 20111230
  Transmission Date: 20120403
  Serious: Yes (Other)
  Sender: FDA-Public Use
  Company Number: None

PATIENT
  Age: 40 Year
  Sex: Female
  Weight: 79.378 kg

DRUGS (1)
  1. CIPROFLOXACIN [Suspect]
     Indication: URINARY TRACT INFECTION
     Dates: start: 20111114, end: 20111115

REACTIONS (11)
  - ASTHENIA [None]
  - CHEST DISCOMFORT [None]
  - ARTHRALGIA [None]
  - WEIGHT DECREASED [None]
  - HEADACHE [None]
  - IMPAIRED WORK ABILITY [None]
  - PALPITATIONS [None]
  - MYALGIA [None]
  - FATIGUE [None]
  - GASTRITIS [None]
  - IRRITABLE BOWEL SYNDROME [None]
